FAERS Safety Report 17781685 (Version 2)
Quarter: 2020Q2

REPORT INFORMATION
  Report Type: Spontaneous
  Country: US (occurrence: US)
  Receive Date: 20200514
  Receipt Date: 20200528
  Transmission Date: 20200714
  Serious: Yes (Other)
  Sender: FDA-Public Use
  Company Number: US-ASTRAZENECA-2020SE57545

PATIENT
  Age: 64 Year
  Sex: Female
  Weight: 69.9 kg

DRUGS (17)
  1. FLOVENT [Concomitant]
     Active Substance: FLUTICASONE PROPIONATE
  2. ADVAIR HFA [Suspect]
     Active Substance: FLUTICASONE PROPIONATE\SALMETEROL XINAFOATE
     Route: 065
  3. AUGMENTIN [Concomitant]
     Active Substance: AMOXICILLIN\CLAVULANATE POTASSIUM
     Indication: SINUSITIS
     Dosage: 875, 125 MG 1 TABLET TOW TIMES A DAY
     Dates: start: 20200404
  4. VITAMIN D3 [Concomitant]
     Active Substance: CHOLECALCIFEROL
     Route: 048
  5. BERGAMOT [Concomitant]
     Indication: BLOOD CHOLESTEROL ABNORMAL
  6. ALBUTEROL. [Concomitant]
     Active Substance: ALBUTEROL
     Dosage: AS REQUIRED
     Route: 055
  7. ROSUVASTATIN CALCIUM. [Suspect]
     Active Substance: ROSUVASTATIN CALCIUM
     Indication: LIPIDS INCREASED
     Dosage: GENERIC, 20 MG AT NIGHT
     Route: 048
  8. ROSUVASTATIN CALCIUM. [Suspect]
     Active Substance: ROSUVASTATIN CALCIUM
     Indication: LIPIDS INCREASED
     Dosage: LOWER DOSE
     Route: 048
  9. AMLODIPINE [Concomitant]
     Active Substance: AMLODIPINE BESYLATE
     Indication: BLOOD PRESSURE ABNORMAL
     Route: 048
  10. BUDESONIDE AND FORMOTEROL FUMARATE DIHYDRATE [Suspect]
     Active Substance: BUDESONIDE\FORMOTEROL FUMARATE
     Indication: ASTHMA
     Dosage: 160/ 4.5 MCG 2 PUFFS TWO TIMES A DAY
     Route: 055
     Dates: start: 20200415
  11. OMEPRAZOLE RX [Concomitant]
     Active Substance: OMEPRAZOLE
     Indication: GASTROOESOPHAGEAL REFLUX DISEASE
     Route: 048
  12. SYNTHROID [Concomitant]
     Active Substance: LEVOTHYROXINE SODIUM
     Route: 048
  13. TERMERIC [Concomitant]
     Dosage: DAILY
     Route: 065
  14. COQ10 [Concomitant]
     Active Substance: UBIDECARENONE
     Route: 048
  15. ASPIRIN. [Concomitant]
     Active Substance: ASPIRIN
     Route: 048
  16. FIBER SUPPLEMENT [Concomitant]
     Active Substance: DIETARY SUPPLEMENT
  17. PREDNISONE. [Concomitant]
     Active Substance: PREDNISONE
     Indication: SINUSITIS
     Dosage: 40 MG AND THEN 20 MG FOR 5 DAYS

REACTIONS (19)
  - White blood cells urine positive [Unknown]
  - Sinusitis [Recovering/Resolving]
  - Dyspnoea [Recovering/Resolving]
  - Lower respiratory tract infection [Unknown]
  - Decreased appetite [Recovering/Resolving]
  - Asthma [Recovering/Resolving]
  - Hiatus hernia [Not Recovered/Not Resolved]
  - Body height decreased [Unknown]
  - Product substitution issue [Unknown]
  - Pyrexia [Recovered/Resolved]
  - Osteopenia [Unknown]
  - Bladder pain [Recovering/Resolving]
  - Weight decreased [Not Recovered/Not Resolved]
  - Hypertension [Unknown]
  - Hypotension [Unknown]
  - SARS-CoV-2 test negative [Unknown]
  - Upper respiratory tract infection [Unknown]
  - Hypoaesthesia [Not Recovered/Not Resolved]
  - Dysphagia [Not Recovered/Not Resolved]

NARRATIVE: CASE EVENT DATE: 2019
